FAERS Safety Report 7128898-7 (Version None)
Quarter: 2010Q4

REPORT INFORMATION
  Report Type: 
  Country: None (occurrence: None)
  Receive Date: 20101130
  Receipt Date: 20101123
  Transmission Date: 20110411
  Serious: Yes (Other)
  Sender: FDA-Public Use
  Company Number: A0882965A

PATIENT
  Age: 89 Year
  Sex: Female

DRUGS (5)
  1. FLOVENT [Suspect]
     Indication: ASTHMA
     Dosage: 1PUFF TWICE PER DAY
     Route: 055
  2. SEREVENT [Concomitant]
  3. VITAMINS [Concomitant]
  4. IRON [Concomitant]
  5. CONCURRENT MEDICATIONS [Concomitant]

REACTIONS (7)
  - CHOKING [None]
  - DRUG HYPERSENSITIVITY [None]
  - FUNGAL INFECTION [None]
  - NASAL ULCER [None]
  - OROPHARYNGEAL PAIN [None]
  - SENSATION OF FOREIGN BODY [None]
  - VAGINAL INFECTION [None]
